FAERS Safety Report 5849642-7 (Version None)
Quarter: 2008Q3

REPORT INFORMATION
  Report Type: 
  Country: None (occurrence: None)
  Receive Date: 20080815
  Receipt Date: 20080812
  Transmission Date: 20090109
  Serious: Yes (Death)
  Sender: FDA-Public Use
  Company Number: 2008SP011879

PATIENT
  Age: 60 Year
  Sex: Male
  Weight: 60 kg

DRUGS (5)
  1. TEMODAL [Suspect]
     Indication: GLIOBLASTOMA MULTIFORME
     Dosage: QD; PO
     Route: 048
     Dates: start: 20060401, end: 20060901
  2. PREDONINE (PREDNISOLONE) [Suspect]
     Indication: GLIOBLASTOMA MULTIFORME
     Dosage: 20 MG PO
     Route: 048
     Dates: start: 20060425, end: 20070322
  3. NIDRAN (NIMUSTINE HYDROCHLORIDE) [Suspect]
     Indication: GLIOBLASTOMA MULTIFORME
     Dosage: IV
     Route: 042
     Dates: start: 20061001, end: 20061101
  4. INTERFERON [Concomitant]
  5. AMLODIPINE BESYLATE [Concomitant]

REACTIONS (4)
  - DIFFUSE LARGE B-CELL LYMPHOMA [None]
  - DISEASE RECURRENCE [None]
  - GLIOBLASTOMA MULTIFORME [None]
  - METASTATIC NEOPLASM [None]
